FAERS Safety Report 6373907-6 (Version None)
Quarter: 2009Q3

REPORT INFORMATION
  Report Type: 
  Country: None (occurrence: None)
  Receive Date: 20090924
  Receipt Date: 20090514
  Transmission Date: 20100115
  Serious: No
  Sender: FDA-Public Use
  Company Number: US-ASTRAZENECA-2009UW12798

PATIENT

DRUGS (1)
  1. SEROQUEL [Suspect]

REACTIONS (3)
  - FOOD CRAVING [None]
  - INCREASED APPETITE [None]
  - WEIGHT INCREASED [None]
